FAERS Safety Report 9734422 (Version 2)
Quarter: 2015Q1

REPORT INFORMATION
  Report Type: Report from Study
  Country: CA (occurrence: CA)
  Receive Date: 20131206
  Receipt Date: 20150326
  Transmission Date: 20150721
  Serious: Yes (Death, Other)
  Sender: FDA-Public Use
  Company Number: CA-ROCHE-1310232

PATIENT
  Age: 46 Year
  Sex: Female
  Weight: 79.4 kg

DRUGS (12)
  1. AMITRIPTYLINE [Concomitant]
     Active Substance: AMITRIPTYLINE
  2. DOCUSATE SODIUM. [Concomitant]
     Active Substance: DOCUSATE SODIUM
  3. OLANZAPINE. [Concomitant]
     Active Substance: OLANZAPINE
  4. MORPHINE [Concomitant]
     Active Substance: MORPHINE
  5. XGEVA [Concomitant]
     Active Substance: DENOSUMAB
  6. XELODA [Suspect]
     Active Substance: CAPECITABINE
     Indication: BREAST CANCER
     Route: 048
     Dates: start: 20131113, end: 20131122
  7. PREVACID [Concomitant]
     Active Substance: LANSOPRAZOLE
  8. JAMP SENNA [Concomitant]
  9. LORAZEPAM. [Concomitant]
     Active Substance: LORAZEPAM
  10. XELODA [Suspect]
     Active Substance: CAPECITABINE
     Indication: METASTASES TO BONE
  11. PRISTIQ EXTENDED RELEASE [Concomitant]
     Active Substance: DESVENLAFAXINE SUCCINATE
  12. DEXAMETHASONE. [Concomitant]
     Active Substance: DEXAMETHASONE

REACTIONS (3)
  - Dehydration [Unknown]
  - Breast cancer metastatic [Fatal]
  - Diarrhoea [Unknown]

NARRATIVE: CASE EVENT DATE: 20131114
